FAERS Safety Report 5511182-2 (Version None)
Quarter: 2007Q4

REPORT INFORMATION
  Report Type: 
  Country: None (occurrence: None)
  Receive Date: 20071109
  Receipt Date: 20071030
  Transmission Date: 20080405
  Serious: Yes (Life-Threatening, Hospitalization, Other)
  Sender: FDA-Public Use
  Company Number: US-ELI_LILLY_AND_COMPANY-US200710007522

PATIENT
  Sex: Male

DRUGS (4)
  1. GEMZAR [Suspect]
     Indication: BONE SARCOMA
     Dosage: 900 MG/M2, OTHER
     Route: 042
     Dates: start: 20071024
  2. MONOCLONAL ANTIBODIES [Concomitant]
  3. ZOFRAN [Concomitant]
     Indication: ANTIEMETIC SUPPORTIVE CARE
     Dosage: 32 MG, UNK
     Route: 042
     Dates: start: 20071024
  4. DECADRON [Concomitant]
     Indication: NAUSEA
     Dosage: 20 MG, UNK
     Route: 042
     Dates: start: 20071024

REACTIONS (4)
  - AMNESIA [None]
  - ARRHYTHMIA [None]
  - CARDIAC ARREST [None]
  - LOSS OF CONSCIOUSNESS [None]
